FAERS Safety Report 4506907-9 (Version None)
Quarter: 2004Q4

REPORT INFORMATION
  Report Type: 
  Country: None (occurrence: None)
  Receive Date: 20041117
  Receipt Date: 20041104
  Transmission Date: 20050328
  Serious: Yes (Hospitalization, Other)
  Sender: FDA-Public Use
  Company Number: 2004071877

PATIENT
  Age: 49 Year
  Sex: Female

DRUGS (2)
  1. ZELDOX (CAPSULES) (ZIPRASIDONE) [Suspect]
     Indication: SCHIZOAFFECTIVE DISORDER
     Dosage: 120 MG (60 MG, 2 IN 1 D), ORAL
     Route: 048
     Dates: start: 20040707
  2. ALPRAZOLAM [Concomitant]

REACTIONS (3)
  - INTENTIONAL OVERDOSE [None]
  - SOMNOLENCE [None]
  - SUICIDE ATTEMPT [None]
